FAERS Safety Report 8439434-7 (Version None)
Quarter: 2012Q2

REPORT INFORMATION
  Report Type: 
  Country: None (occurrence: None)
  Receive Date: 20120615
  Receipt Date: 20120521
  Transmission Date: 20120825
  Serious: Yes (Other)
  Sender: FDA-Public Use
  Company Number: US-RB-041392-12

PATIENT
  Age: 8 Year
  Sex: Male

DRUGS (7)
  1. CLONIDINE [Suspect]
     Indication: ATTENTION DEFICIT/HYPERACTIVITY DISORDER
  2. CLONIDINE [Suspect]
     Indication: POST-TRAUMATIC STRESS DISORDER
  3. METHYLPHENIDATE [Suspect]
     Indication: ATTENTION DEFICIT/HYPERACTIVITY DISORDER
  4. CITALOPRAM HYDROBROMIDE [Suspect]
     Indication: ATTENTION DEFICIT/HYPERACTIVITY DISORDER
  5. METHYLPHENIDATE [Suspect]
     Indication: POST-TRAUMATIC STRESS DISORDER
  6. DEXTROMETHORPHAN HYDROBROMIDE [Suspect]
     Indication: NASOPHARYNGITIS
  7. CITALOPRAM HYDROBROMIDE [Suspect]
     Indication: POST-TRAUMATIC STRESS DISORDER

REACTIONS (13)
  - CLONUS [None]
  - SALIVARY HYPERSECRETION [None]
  - TORTICOLLIS [None]
  - SOMNOLENCE [None]
  - MYDRIASIS [None]
  - HYPERTENSION [None]
  - TACHYCARDIA [None]
  - AGITATION [None]
  - URINARY INCONTINENCE [None]
  - SPEECH DISORDER [None]
  - TREMOR [None]
  - ENCEPHALOPATHY [None]
  - FLUSHING [None]
